FAERS Safety Report 8495301-4 (Version None)
Quarter: 2012Q3

REPORT INFORMATION
  Report Type: 
  Country: None (occurrence: None)
  Receive Date: 20120709
  Receipt Date: 20120704
  Transmission Date: 20120928
  Serious: Yes (Hospitalization)
  Sender: FDA-Public Use
  Company Number: PE-PFIZER INC-2012155969

PATIENT
  Age: 76 Year
  Sex: Male

DRUGS (2)
  1. CARDURA [Suspect]
     Dosage: 4 MG, 1X/DAY
     Route: 048
  2. CARDURA [Suspect]
     Indication: BENIGN PROSTATIC HYPERPLASIA
     Dosage: 4 MG, 1X/DAY
     Route: 048
     Dates: start: 20110101

REACTIONS (1)
  - COLON CANCER [None]
